FAERS Safety Report 5956164-1 (Version None)
Quarter: 2008Q4

REPORT INFORMATION
  Report Type: 
  Country: None (occurrence: None)
  Receive Date: 20081118
  Receipt Date: 20081103
  Transmission Date: 20090506
  Serious: Yes (Hospitalization)
  Sender: FDA-Public Use
  Company Number: US-BIOGENIDEC-2008BI029503

PATIENT
  Age: 57 Year
  Sex: Male

DRUGS (3)
  1. AVONEX [Suspect]
     Indication: MULTIPLE SCLEROSIS
     Route: 030
  2. INFLIXIMAB [Concomitant]
     Route: 042
  3. INFLIXIMAB [Concomitant]
     Route: 048

REACTIONS (1)
  - DERMATOMYOSITIS [None]
